FAERS Safety Report 25416471 (Version 1)
Quarter: 2025Q2

REPORT INFORMATION
  Report Type: Spontaneous
  Country: MY (occurrence: MY)
  Receive Date: 20250610
  Receipt Date: 20250610
  Transmission Date: 20250717
  Serious: Yes (Other)
  Sender: GLAND PHARMA LTD
  Company Number: MY-GLANDPHARMA-MY-2025GLNLIT01371

PATIENT
  Age: 13 Year
  Sex: Male

DRUGS (7)
  1. CYTARABINE [Suspect]
     Active Substance: CYTARABINE
     Indication: Precursor T-lymphoblastic leukaemia acute
     Route: 037
  2. DEXAMETHASONE SODIUM PHOSPHATE [Suspect]
     Active Substance: DEXAMETHASONE SODIUM PHOSPHATE
     Indication: Precursor T-lymphoblastic leukaemia acute
     Route: 065
  3. METHOTREXATE [Suspect]
     Active Substance: METHOTREXATE
     Indication: T-cell type acute leukaemia
     Route: 065
  4. MERCAPTOPURINE [Suspect]
     Active Substance: MERCAPTOPURINE
     Indication: T-cell type acute leukaemia
     Route: 048
  5. VINCRISTINE [Suspect]
     Active Substance: VINCRISTINE
     Indication: Precursor T-lymphoblastic leukaemia acute
     Route: 037
  6. DAUNORUBICIN [Suspect]
     Active Substance: DAUNORUBICIN
     Indication: Precursor T-lymphoblastic leukaemia acute
     Route: 037
  7. CYCLOPHOSPHAMIDE [Suspect]
     Active Substance: CYCLOPHOSPHAMIDE
     Indication: T-cell type acute leukaemia
     Route: 037

REACTIONS (3)
  - Febrile neutropenia [Unknown]
  - Hyperbilirubinaemia [Unknown]
  - Jaundice [Unknown]
